FAERS Safety Report 6690429-3 (Version None)
Quarter: 2010Q2

REPORT INFORMATION
  Report Type: 
  Country: None (occurrence: None)
  Receive Date: 20100421
  Receipt Date: 20090306
  Transmission Date: 20101027
  Serious: No
  Sender: FDA-Public Use
  Company Number: US-ASTRAZENECA-2009UW06064

PATIENT
  Age: 61 Year
  Sex: Male

DRUGS (1)
  1. CASODEX [Suspect]
     Route: 048
     Dates: start: 20080627, end: 20090303

REACTIONS (3)
  - ABDOMINAL DISTENSION [None]
  - CHOKING [None]
  - FATIGUE [None]
